FAERS Safety Report 6891617-3 (Version None)
Quarter: 2010Q3

REPORT INFORMATION
  Report Type: 
  Country: None (occurrence: None)
  Receive Date: 20100731
  Receipt Date: 20070813
  Transmission Date: 20110219
  Serious: No
  Sender: FDA-Public Use
  Company Number: US-PFIZER INC-2007067201

PATIENT
  Sex: Female
  Weight: 79.545 kg

DRUGS (7)
  1. DEPO-MEDROL [Suspect]
     Indication: PROCEDURAL COMPLICATION
     Dates: start: 20070813
  2. ESTRATEST [Concomitant]
  3. CELEXA [Concomitant]
  4. VYTORIN [Concomitant]
  5. PRILOSEC [Concomitant]
  6. AMITIZA [Concomitant]
  7. OMEPRAZOLE [Concomitant]

REACTIONS (2)
  - INCORRECT ROUTE OF DRUG ADMINISTRATION [None]
  - WRONG DRUG ADMINISTERED [None]
